FAERS Safety Report 17773641 (Version 1)
Quarter: 2020Q2

REPORT INFORMATION
  Report Type: Spontaneous
  Country: CN (occurrence: CN)
  Receive Date: 20200512
  Receipt Date: 20200512
  Transmission Date: 20200714
  Serious: Yes (Other)
  Sender: FDA-Public Use
  Company Number: CN-BAXTER-2020BAX009943

PATIENT
  Age: 56 Year
  Sex: Male
  Weight: 65 kg

DRUGS (4)
  1. PIRARUBICIN HYDROCHLORIDE [Suspect]
     Active Substance: PIRARUBICIN HYDROCHLORIDE
     Indication: BREAST CANCER MALE
     Dosage: PIRARUBICIN HYDROCHLORIDE 50 MG + 5% GLUCOSE 100 ML, FOR 2 DAYS
     Route: 041
     Dates: start: 20200417, end: 20200418
  2. ENDOXAN [Suspect]
     Active Substance: CYCLOPHOSPHAMIDE
     Indication: BREAST CANCER MALE
     Dosage: CYCLOPHOSPHAMIDE 1000 MG + 0.9% SODIUM CHLORIDE 100 ML, FOR 2 DAYS
     Route: 041
     Dates: start: 20200417, end: 20200418
  3. 0.9% SODIUM CHLORIDE INJECTION [Suspect]
     Active Substance: SODIUM CHLORIDE
     Indication: MEDICATION DILUTION
     Dosage: CYCLOPHOSPHAMIDE 1000 MG + 0.9% SODIUM CHLORIDE 100 ML, FOR 2 DAYS
     Route: 041
     Dates: start: 20200417, end: 20200418
  4. 5% GLUCOSE  INJECTION [Suspect]
     Active Substance: DEXTROSE
     Indication: MEDICATION DILUTION
     Dosage: PIRARUBICIN HYDROCHLORIDE 50 MG + 5% GLUCOSE INJECTION 100 ML, FOR 2 DAYS
     Route: 041
     Dates: start: 20200417, end: 20200418

REACTIONS (2)
  - Platelet count decreased [Recovered/Resolved]
  - Bone marrow failure [Recovered/Resolved]

NARRATIVE: CASE EVENT DATE: 20200501
